FAERS Safety Report 11750472 (Version 1)
Quarter: 2015Q4

REPORT INFORMATION
  Report Type: Spontaneous
  Country: US (occurrence: US)
  Receive Date: 20151118
  Receipt Date: 20151118
  Transmission Date: 20160304
  Serious: No
  Sender: FDA-Public Use
  Company Number: US-MEDA-2015110008

PATIENT
  Age: 48 Year
  Sex: Female
  Weight: 59 kg

DRUGS (4)
  1. ELESTRIN [Suspect]
     Active Substance: ESTRADIOL
     Indication: BLOOD OESTROGEN DECREASED
     Route: 061
     Dates: start: 201411, end: 2015
  2. ELESTRIN [Suspect]
     Active Substance: ESTRADIOL
     Indication: BLOOD OESTROGEN DECREASED
     Route: 061
     Dates: start: 2015, end: 2015
  3. ELESTRIN [Suspect]
     Active Substance: ESTRADIOL
     Indication: BLOOD OESTROGEN DECREASED
     Route: 061
     Dates: start: 2015
  4. SYNTHROID [Concomitant]
     Active Substance: LEVOTHYROXINE SODIUM

REACTIONS (3)
  - Drug ineffective for unapproved indication [Unknown]
  - Off label use [Not Recovered/Not Resolved]
  - Ephelides [Not Recovered/Not Resolved]

NARRATIVE: CASE EVENT DATE: 2014
